FAERS Safety Report 11658649 (Version 5)
Quarter: 2016Q4

REPORT INFORMATION
  Report Type: Report from Study
  Country: BR (occurrence: BR)
  Receive Date: 20151026
  Receipt Date: 20161010
  Transmission Date: 20170206
  Serious: Yes (Life-Threatening, Other)
  Sender: FDA-Public Use
  Company Number: PHHY2015BR134711

PATIENT
  Age: 67 Year
  Sex: Female
  Weight: 95 kg

DRUGS (10)
  1. QUETIAPINA [Concomitant]
     Active Substance: QUETIAPINE
     Indication: SLEEP DISORDER
     Dosage: 2 DF, QHS
     Route: 048
  2. FORASEQ [Suspect]
     Active Substance: BUDESONIDE\FORMOTEROL FUMARATE
     Dosage: 1 DF (BUDESONIDE 400UG, FORMOTEROL FUMARATE UNKNOWN) ,QD
     Route: 055
  3. TORSILAX [Concomitant]
     Active Substance: ACETAMINOPHEN\CAFFEINE\CARISOPRODOL\DICLOFENAC
     Indication: PAIN
     Dosage: 1 DF, BID
     Route: 048
  4. DIPIRONA [Concomitant]
     Active Substance: METAMIZOLE
     Indication: FIBROMYALGIA
     Dosage: 2 DF, TID
     Route: 048
  5. BEROTEC [Suspect]
     Active Substance: FENOTEROL HYDROBROMIDE
     Indication: PRODUCT USED FOR UNKNOWN INDICATION
     Route: 055
  6. ADVIL [Concomitant]
     Active Substance: IBUPROFEN
     Indication: PAIN
     Dosage: 2-3 DF, QD
     Route: 048
  7. FORASEQ [Suspect]
     Active Substance: BUDESONIDE\FORMOTEROL FUMARATE
     Dosage: 3 DF, UNK
     Route: 065
  8. FORASEQ [Suspect]
     Active Substance: BUDESONIDE\FORMOTEROL FUMARATE
     Indication: ASTHMA
     Dosage: 4 DF (BUDESONIDE 400UG, FORMOTEROL FUMARATE12UG), QD (2 IN THE MORNING AND 2 AT NIGHT)
     Route: 055
  9. CLONAZEPAN [Concomitant]
     Active Substance: CLONAZEPAM
     Indication: SLEEP DISORDER
     Dosage: 2 DF, QHS
     Route: 048
  10. AMITRIPTILINA [Concomitant]
     Active Substance: AMITRIPTYLINE HYDROCHLORIDE
     Indication: FIBROMYALGIA
     Dosage: 2 DF, TID
     Route: 048

REACTIONS (16)
  - Asthma [Unknown]
  - Disturbance in attention [Unknown]
  - Deafness [Not Recovered/Not Resolved]
  - Upper limb fracture [Recovering/Resolving]
  - Malaise [Unknown]
  - Cardiac arrest [Recovered/Resolved]
  - Dementia Alzheimer^s type [Unknown]
  - Drug dependence [Unknown]
  - Fall [Recovering/Resolving]
  - Visual acuity reduced [Unknown]
  - Oropharyngeal pain [Not Recovered/Not Resolved]
  - Weight increased [Unknown]
  - Movement disorder [Unknown]
  - Tuberculosis [Recovering/Resolving]
  - Dyspnoea [Not Recovered/Not Resolved]
  - Bronchitis [Unknown]

NARRATIVE: CASE EVENT DATE: 20161001
